FAERS Safety Report 11604701 (Version 1)
Quarter: 2015Q4

REPORT INFORMATION
  Report Type: Report from Study
  Country: US (occurrence: US)
  Receive Date: 20151007
  Receipt Date: 20151007
  Transmission Date: 20160304
  Serious: Yes (Hospitalization, Other)
  Sender: FDA-Public Use
  Company Number: US-BIOGENIDEC-2015BI135090

PATIENT
  Age: 50 Year
  Sex: Female

DRUGS (1)
  1. AVONEX [Suspect]
     Active Substance: INTERFERON BETA-1A
     Indication: MULTIPLE SCLEROSIS
     Route: 030

REACTIONS (14)
  - Seizure [Unknown]
  - Visual field defect [Not Recovered/Not Resolved]
  - Migraine [Unknown]
  - Bladder dysfunction [Not Recovered/Not Resolved]
  - Influenza like illness [Recovered/Resolved]
  - Myocardial infarction [Unknown]
  - Multiple sclerosis relapse [Unknown]
  - Blindness unilateral [Not Recovered/Not Resolved]
  - Memory impairment [Not Recovered/Not Resolved]
  - Diabetes mellitus [Unknown]
  - Hypocholesterolaemia [Unknown]
  - Disturbance in attention [Not Recovered/Not Resolved]
  - Cerebrovascular accident [Unknown]
  - Loss of control of legs [Not Recovered/Not Resolved]

NARRATIVE: CASE EVENT DATE: 2009
